FAERS Safety Report 16700524 (Version 3)
Quarter: 2019Q3

REPORT INFORMATION
  Report Type: Spontaneous
  Country: US (occurrence: US)
  Receive Date: 20190814
  Receipt Date: 20190916
  Transmission Date: 20191004
  Serious: No
  Sender: FDA-Public Use
  Company Number: US-GILEAD-2019-0423540

PATIENT
  Age: 69 Year
  Sex: Male
  Weight: 111 kg

DRUGS (17)
  1. CALCIUM CARBONATE AND VITAMIN D [Concomitant]
     Active Substance: CALCIUM CARBONATE\VITAMIN D
  2. NORCO [Concomitant]
     Active Substance: ACETAMINOPHEN\HYDROCODONE BITARTRATE
  3. PAMELOR [Concomitant]
     Active Substance: NORTRIPTYLINE HYDROCHLORIDE
  4. ZANAFLEX [Concomitant]
     Active Substance: TIZANIDINE HYDROCHLORIDE
  5. ROXICODONE [Concomitant]
     Active Substance: OXYCODONE HYDROCHLORIDE
  6. LIDOCAINE 5% EXTRA [Concomitant]
  7. ABATACEPT [Concomitant]
     Active Substance: ABATACEPT
  8. CHOLECALCIFEROL [Concomitant]
     Active Substance: CHOLECALCIFEROL
  9. NEURONTIN [Concomitant]
     Active Substance: GABAPENTIN
  10. BONIVA [Concomitant]
     Active Substance: IBANDRONATE SODIUM
  11. RITUXAN [Concomitant]
     Active Substance: RITUXIMAB
  12. DELTASONE [DEXAMETHASONE] [Concomitant]
  13. ASPIRINE [Concomitant]
     Active Substance: ASPIRIN
  14. HARVONI [Suspect]
     Active Substance: LEDIPASVIR\SOFOSBUVIR
     Indication: CHRONIC HEPATITIS C
     Dosage: 1 DOSAGE FORM
     Route: 048
  15. XALATAN [Concomitant]
     Active Substance: LATANOPROST
  16. ARAVA [Concomitant]
     Active Substance: LEFLUNOMIDE
  17. NARCAN [Concomitant]
     Active Substance: NALOXONE HYDROCHLORIDE

REACTIONS (2)
  - Blister [Recovered/Resolved]
  - Cryoglobulins present [Not Recovered/Not Resolved]

NARRATIVE: CASE EVENT DATE: 20190806
